FAERS Safety Report 22657084 (Version 1)
Quarter: 2023Q2

REPORT INFORMATION
  Report Type: Spontaneous
  Country: CN (occurrence: CN)
  Receive Date: 20230630
  Receipt Date: 20230630
  Transmission Date: 20230721
  Serious: Yes (Other)
  Sender: FDA-Public Use
  Company Number: CN-SA-SAC20230627000374

PATIENT
  Age: 58 Year
  Sex: Female

DRUGS (6)
  1. TAXOTERE [Suspect]
     Active Substance: DOCETAXEL
     Indication: Chemotherapy
     Dosage: 120MG, QD
     Route: 041
     Dates: start: 20230601, end: 20230601
  2. CARBOPLATIN [Suspect]
     Active Substance: CARBOPLATIN
     Indication: Chemotherapy
     Dosage: 0.430G, QD
     Route: 041
     Dates: start: 20230601, end: 20230601
  3. TRASTUZUMAB [Suspect]
     Active Substance: TRASTUZUMAB
     Indication: Chemotherapy
     Dosage: 360MG, QD
     Route: 041
     Dates: start: 20230531, end: 20230531
  4. PERTUZUMAB [Suspect]
     Active Substance: PERTUZUMAB
     Indication: Chemotherapy
     Dosage: 420MG, QD
     Route: 041
     Dates: start: 20230531, end: 20230531
  5. OMEPRAZOLE SODIUM [Concomitant]
     Active Substance: OMEPRAZOLE SODIUM
     Indication: Chemotherapy
     Dosage: 1 VIAL, BID
     Route: 041
     Dates: start: 20230531, end: 20230602
  6. ONDANSETRON HYDROCHLORIDE [Concomitant]
     Active Substance: ONDANSETRON HYDROCHLORIDE
     Indication: Chemotherapy
     Dosage: 1 VIAL, QD
     Route: 041
     Dates: start: 20230531, end: 20230531

REACTIONS (5)
  - Tricuspid valve incompetence [Recovered/Resolved]
  - Cardiotoxicity [Recovered/Resolved]
  - Diastolic dysfunction [Recovered/Resolved]
  - Palpitations [Recovered/Resolved]
  - Chest discomfort [Recovered/Resolved]

NARRATIVE: CASE EVENT DATE: 20230601
